FAERS Safety Report 20115330 (Version 4)
Quarter: 2022Q1

REPORT INFORMATION
  Report Type: Report from Study
  Country: US (occurrence: US)
  Receive Date: 20211125
  Receipt Date: 20220113
  Transmission Date: 20220423
  Serious: Yes (Other)
  Sender: FDA-Public Use
  Company Number: NVSC2020US360540

PATIENT
  Sex: Female

DRUGS (3)
  1. LUTATHERA [Suspect]
     Active Substance: LUTETIUM OXODOTREOTIDE LU-177
     Indication: Neuroendocrine tumour
     Dosage: UNK
     Route: 065
  2. CAPECITABINE [Suspect]
     Active Substance: CAPECITABINE
     Indication: Product used for unknown indication
     Dosage: 750 MG (DAYS 1-14)
     Route: 065
  3. TEMOZOLOMIDE [Suspect]
     Active Substance: TEMOZOLOMIDE
     Indication: Product used for unknown indication
     Dosage: 200 MG (DAYS 1-14)
     Route: 065

REACTIONS (10)
  - Neuroendocrine tumour [Unknown]
  - Malignant neoplasm progression [Unknown]
  - Laboratory test abnormal [Unknown]
  - Hepatomegaly [Unknown]
  - Arthralgia [Unknown]
  - Asthenia [Unknown]
  - Diarrhoea [Unknown]
  - Dehydration [Unknown]
  - Nausea [Unknown]
  - Product use in unapproved indication [Unknown]
